FAERS Safety Report 15168889 (Version 1)
Quarter: 2018Q3

REPORT INFORMATION
  Report Type: Spontaneous
  Country: AU (occurrence: AU)
  Receive Date: 20180720
  Receipt Date: 20180720
  Transmission Date: 20181010
  Serious: Yes (Hospitalization)
  Sender: FDA-Public Use
  Company Number: AU-CONCORDIA PHARMACEUTICALS INC.-GSH201807-002523

PATIENT
  Age: 35 Year
  Sex: Female

DRUGS (5)
  1. PHENERGAN [Suspect]
     Active Substance: PROMETHAZINE HYDROCHLORIDE
     Dosage: 25 MG
     Route: 065
  2. RANITIDINE HYDROCHLORIDE. [Suspect]
     Active Substance: RANITIDINE HYDROCHLORIDE
     Dosage: 150 MG, BID
     Route: 065
  3. LORATADINE. [Suspect]
     Active Substance: LORATADINE
     Dosage: 10 MG, BID
     Route: 065
  4. PREDNISOLONE. [Suspect]
     Active Substance: PREDNISOLONE
     Dosage: 25 MG
     Route: 065
  5. PLAQUENIL [Suspect]
     Active Substance: HYDROXYCHLOROQUINE SULFATE
     Dosage: 200 MG, BID
     Route: 065

REACTIONS (2)
  - Anaphylactic reaction [Unknown]
  - Weight increased [Unknown]

NARRATIVE: CASE EVENT DATE: 201710
